FAERS Safety Report 25045146 (Version 1)
Quarter: 2025Q1

REPORT INFORMATION
  Report Type: Spontaneous
  Country: KR (occurrence: KR)
  Receive Date: 20250306
  Receipt Date: 20250306
  Transmission Date: 20250408
  Serious: Yes (Hospitalization)
  Sender: JOHNSON AND JOHNSON
  Company Number: KR-JNJFOC-20250271181

PATIENT

DRUGS (2)
  1. SPORANOX [Suspect]
     Active Substance: ITRACONAZOLE
     Indication: Product used for unknown indication
     Route: 065
  2. VORICONAZOLE [Concomitant]
     Active Substance: VORICONAZOLE
     Indication: Antifungal prophylaxis

REACTIONS (2)
  - Hospitalisation [Unknown]
  - Product administration error [Unknown]
